FAERS Safety Report 5600877-8 (Version None)
Quarter: 2008Q1

REPORT INFORMATION
  Report Type: 
  Country: None (occurrence: None)
  Receive Date: 20080124
  Receipt Date: 20080116
  Transmission Date: 20080703
  Serious: Yes (Hospitalization)
  Sender: FDA-Public Use
  Company Number: NL-JNJFOC-20080103497

PATIENT
  Sex: Male
  Weight: 70 kg

DRUGS (4)
  1. DAKTARIN [Suspect]
     Route: 048
  2. DAKTARIN [Suspect]
     Indication: ORAL CANDIDIASIS
     Route: 048
  3. TRISPORAL [Suspect]
     Indication: ORAL CANDIDIASIS
     Route: 048
  4. FLAGYL [Suspect]
     Indication: ORAL CANDIDIASIS
     Route: 065

REACTIONS (1)
  - DERMATOMYOSITIS [None]
